FAERS Safety Report 14242350 (Version 1)
Quarter: 2017Q4

REPORT INFORMATION
  Report Type: Spontaneous
  Country: US (occurrence: US)
  Receive Date: 20171201
  Receipt Date: 20171201
  Transmission Date: 20180321
  Serious: No
  Sender: FDA-Public Use
  Company Number: US-PFIZER INC-2017514443

PATIENT
  Age: 65 Year
  Sex: Female
  Weight: 88.9 kg

DRUGS (3)
  1. VERZENIO [Concomitant]
     Active Substance: ABEMACICLIB
     Dosage: 150 MG, 2X/DAY
  2. FASLODEX [Concomitant]
     Active Substance: FULVESTRANT
     Dosage: EVERY OTHER WEEK
  3. AROMASIN [Suspect]
     Active Substance: EXEMESTANE
     Indication: BREAST CANCER
     Dosage: 25 MG, 1X/DAY
     Dates: start: 201412, end: 20171123

REACTIONS (1)
  - Neoplasm progression [Unknown]
